FAERS Safety Report 22884116 (Version 4)
Quarter: 2023Q4

REPORT INFORMATION
  Report Type: Report from Study
  Country: US (occurrence: US)
  Receive Date: 20230830
  Receipt Date: 20231012
  Transmission Date: 20240110
  Serious: No
  Sender: FDA-Public Use
  Company Number: US-002147023-NVSC2023US187901

PATIENT
  Sex: Male

DRUGS (1)
  1. COSENTYX [Suspect]
     Active Substance: SECUKINUMAB
     Indication: Psoriasis
     Dosage: 300 MG, QMO
     Route: 030

REACTIONS (5)
  - Device malfunction [Unknown]
  - Device breakage [Unknown]
  - Device issue [Unknown]
  - Incorrect route of product administration [Unknown]
  - Incorrect dose administered [Unknown]
